FAERS Safety Report 20148414 (Version 1)
Quarter: 2021Q4

REPORT INFORMATION
  Report Type: Report from Study
  Country: US (occurrence: US)
  Receive Date: 20211204
  Receipt Date: 20211204
  Transmission Date: 20220303
  Serious: Yes (Hospitalization, Other)
  Sender: FDA-Public Use
  Company Number: US-AUROBINDO-AUR-APL-2021-049137

PATIENT
  Age: 39 Year
  Sex: Male

DRUGS (1)
  1. CLOZAPINE [Suspect]
     Active Substance: CLOZAPINE
     Indication: Psychotic disorder
     Dosage: UNK
     Route: 065

REACTIONS (7)
  - Cardiac arrest [Unknown]
  - Cardiac failure congestive [Unknown]
  - Acute kidney injury [Unknown]
  - Pyrexia [Unknown]
  - Tachycardia [Unknown]
  - Myocarditis [Unknown]
  - Diarrhoea [Unknown]
